FAERS Safety Report 24660005 (Version 1)
Quarter: 2024Q4

REPORT INFORMATION
  Report Type: Spontaneous
  Country: US (occurrence: None)
  Receive Date: 20241123
  Receipt Date: 20241123
  Transmission Date: 20250114
  Serious: Yes (Other)
  Sender: Public
  Company Number: None

PATIENT
  Age: 60 Year
  Sex: Female
  Weight: 99 kg

DRUGS (5)
  1. REPATHA [Suspect]
     Active Substance: EVOLOCUMAB
     Indication: Blood cholesterol increased
     Dosage: OTHER QUANTITY : 1 INJECTION(S)?OTHER FREQUENCY : EVERY 2 WEEKS?
     Route: 030
     Dates: start: 20240819, end: 20240828
  2. LOSARTAN [Concomitant]
     Active Substance: LOSARTAN
  3. CHLORPHENIRAMINE MALEATE [Concomitant]
  4. vitamin d [Concomitant]
  5. VITAMIN B12 [Concomitant]
     Active Substance: CYANOCOBALAMIN

REACTIONS (3)
  - Throat tightness [None]
  - Peripheral swelling [None]
  - Constipation [None]

NARRATIVE: CASE EVENT DATE: 20240828
